FAERS Safety Report 17185348 (Version 1)
Quarter: 2019Q4

REPORT INFORMATION
  Report Type: Spontaneous
  Country: US (occurrence: US)
  Receive Date: 20191220
  Receipt Date: 20191220
  Transmission Date: 20200122
  Serious: No
  Sender: FDA-Public Use
  Company Number: US-THERAPEUTICSMD-2019TMD03172

PATIENT
  Sex: Female
  Weight: 55.78 kg

DRUGS (5)
  1. UNSPECIFIED ANTIPLATELET MEDICATION [Concomitant]
     Active Substance: UNSPECIFIED INGREDIENT
  2. VITAMINS [Concomitant]
     Active Substance: VITAMINS
  3. IMVEXXY [Suspect]
     Active Substance: ESTRADIOL
     Indication: VULVOVAGINAL DRYNESS
     Dosage: 10 ?G, 2X/WEEK AT BEDTIME
     Route: 067
     Dates: start: 2019
  4. UNSPECIFIED MEDICATION FOR ARTHRITIS [Concomitant]
  5. UNSPECIFIED MEDICATION FOR VERY LOW BLOOD PRESSURE [Concomitant]

REACTIONS (3)
  - Off label use [Not Recovered/Not Resolved]
  - Cystitis [Unknown]
  - Vulvovaginal burning sensation [Not Recovered/Not Resolved]

NARRATIVE: CASE EVENT DATE: 2019
